FAERS Safety Report 8558598-8 (Version None)
Quarter: 2012Q3

REPORT INFORMATION
  Report Type: 
  Country: None (occurrence: None)
  Receive Date: 20120801
  Receipt Date: 20120711
  Transmission Date: 20120928
  Serious: No
  Sender: FDA-Public Use
  Company Number: US-ASTRAZENECA-2012SE47953

PATIENT
  Age: 76 Year
  Sex: Male
  Weight: 127.9 kg

DRUGS (2)
  1. SYMBICORT [Suspect]
     Indication: COUGH
     Dosage: 160/4.5 TWO PUFFS BID
     Route: 055
  2. SYMBICORT [Suspect]
     Indication: PULMONARY HYPERTENSION
     Dosage: 160/4.5 TWO PUFFS BID
     Route: 055

REACTIONS (4)
  - APHONIA [None]
  - HEADACHE [None]
  - OFF LABEL USE [None]
  - CHEST PAIN [None]
